FAERS Safety Report 10562625 (Version 1)
Quarter: 2014Q4

REPORT INFORMATION
  Report Type: Spontaneous
  Country: US (occurrence: None)
  Receive Date: 20141103
  Receipt Date: 20141103
  Transmission Date: 20150529
  Serious: Yes (Disabling)
  Sender: FDA-Public Use
  Company Number: None

PATIENT
  Age: 47 Year
  Sex: Female
  Weight: 46.27 kg

DRUGS (1)
  1. LEVAQUIN [Suspect]
     Active Substance: LEVOFLOXACIN
     Indication: ARTHROPOD STING
     Dosage: 1 DOSE ONCE DAILY TAKEN BY MOUTH
     Route: 048
     Dates: start: 20131118, end: 20131124

REACTIONS (5)
  - Feeling of despair [None]
  - Nervous system disorder [None]
  - Gait disturbance [None]
  - Joint crepitation [None]
  - Tendon disorder [None]

NARRATIVE: CASE EVENT DATE: 20131118
